FAERS Safety Report 7912893-1 (Version None)
Quarter: 2011Q4

REPORT INFORMATION
  Report Type: 
  Country: None (occurrence: None)
  Receive Date: 20111114
  Receipt Date: 20111108
  Transmission Date: 20120403
  Serious: Yes (Other)
  Sender: FDA-Public Use
  Company Number: US-PFIZER INC-001-0981-984018

PATIENT
  Age: 48 Year
  Sex: Male
  Weight: 84.37 kg

DRUGS (7)
  1. ZITHROMAX [Suspect]
     Indication: SINUSITIS
  2. VALIUM [Concomitant]
  3. LIPITOR [Suspect]
     Indication: HYPERLIPIDAEMIA
     Dosage: 10 MG DAILY
     Dates: start: 19971106
  4. WELLBUTRIN [Concomitant]
  5. ELAVIL [Concomitant]
  6. ZITHROMAX [Suspect]
     Indication: UPPER RESPIRATORY TRACT INFECTION
     Dosage: UNK
     Route: 048
     Dates: start: 19971110, end: 19971222
  7. PROZAC [Concomitant]

REACTIONS (2)
  - INTENTIONAL OVERDOSE [None]
  - RHABDOMYOLYSIS [None]
